FAERS Safety Report 9517302 (Version 2)
Quarter: 2013Q3

REPORT INFORMATION
  Report Type: Spontaneous
  Country: US (occurrence: US)
  Receive Date: 20130911
  Receipt Date: 20130924
  Transmission Date: 20140515
  Serious: Yes (Other)
  Sender: FDA-Public Use
  Company Number: US-UCBSA-096592

PATIENT
  Age: 29 Year
  Sex: Male

DRUGS (3)
  1. CIMZIA [Suspect]
     Indication: ANKYLOSING SPONDYLITIS
     Dates: start: 20130827, end: 20130827
  2. MORPHINE [Concomitant]
     Indication: PAIN
     Dosage: DOSE: 15 UNSPECIFIED UNITS; BID
     Route: 048
     Dates: start: 20130821
  3. PERCOCET [Concomitant]
     Indication: PAIN
     Dosage: DOSE: 5 UNSPECIFIED UNITS; QD
     Dates: start: 20110101

REACTIONS (2)
  - Rash [Recovered/Resolved]
  - Angioedema [Recovered/Resolved]
